FAERS Safety Report 7569204-3 (Version None)
Quarter: 2011Q2

REPORT INFORMATION
  Report Type: 
  Country: None (occurrence: None)
  Receive Date: 20110623
  Receipt Date: 20110610
  Transmission Date: 20111010
  Serious: Yes (Other)
  Sender: FDA-Public Use
  Company Number: PHHY2011JP51677

PATIENT
  Age: 75 Year
  Sex: Male

DRUGS (4)
  1. RASILEZ [Suspect]
     Indication: HYPERTENSION
     Dosage: UNK
     Route: 048
     Dates: start: 20110328, end: 20110509
  2. CONIEL [Concomitant]
     Dosage: 8 MG, UNK
  3. MICARDIS [Concomitant]
     Dosage: 80 MG, UNK
     Route: 048
  4. LASIX [Concomitant]
     Dosage: 20 MG, UNK
     Route: 048

REACTIONS (4)
  - BLOOD CREATININE INCREASED [None]
  - RENAL ARTERY STENOSIS [None]
  - HYPERKALAEMIA [None]
  - BLOOD URIC ACID INCREASED [None]
